FAERS Safety Report 5390949-8 (Version None)
Quarter: 2007Q3

REPORT INFORMATION
  Report Type: 
  Country: None (occurrence: None)
  Receive Date: 20070717
  Receipt Date: 20070703
  Transmission Date: 20080115
  Serious: Yes (Other)
  Sender: FDA-Public Use
  Company Number: 2007US-08429

PATIENT
  Age: 12 Year
  Sex: Male

DRUGS (7)
  1. ISOTRETINOIN [Suspect]
     Indication: ACNE
     Dosage: SEE IMAGE
     Route: 048
     Dates: start: 20070314, end: 20070505
  2. ISOTRETINOIN [Suspect]
     Indication: ACNE
     Dosage: SEE IMAGE
     Route: 048
     Dates: end: 20070630
  3. PREDNISONE [Concomitant]
  4. NAPROSYN [Concomitant]
  5. DOXYCYCLINE [Concomitant]
  6. ADDERALL 30 [Concomitant]
  7. IBUPROFEN [Concomitant]

REACTIONS (9)
  - BLOOD TRIGLYCERIDES INCREASED [None]
  - DISEASE RECURRENCE [None]
  - HAEMORRHAGE [None]
  - PAIN [None]
  - SCAB [None]
  - SKIN LESION [None]
  - SWELLING FACE [None]
  - URTICARIA [None]
  - WHITE BLOOD CELL COUNT INCREASED [None]
